FAERS Safety Report 20017282 (Version 1)
Quarter: 2021Q4

REPORT INFORMATION
  Report Type: Spontaneous
  Country: US (occurrence: US)
  Receive Date: 20211030
  Receipt Date: 20211030
  Transmission Date: 20220303
  Serious: No
  Sender: FDA-Public Use
  Company Number: US-drreddys-SPO/USA/21/0143232

PATIENT
  Age: 22 Year
  Sex: Male

DRUGS (1)
  1. ZENATANE [Suspect]
     Active Substance: ISOTRETINOIN
     Indication: Product used for unknown indication
     Dosage: RMA ISSUE DATE:13 SEPTEMBER 2021 1:54:49 PM 15 SEPTEMBER 2021 1:38:21 PM

REACTIONS (1)
  - Adverse drug reaction [Unknown]
